FAERS Safety Report 9736220 (Version 3)
Quarter: 2014Q2

REPORT INFORMATION
  Report Type: Report from Study
  Country: FR (occurrence: FR)
  Receive Date: 20131206
  Receipt Date: 20140611
  Transmission Date: 20141212
  Serious: Yes (Death, Other)
  Sender: FDA-Public Use
  Company Number: FR-ROCHE-1312702

PATIENT
  Age: 76 Year
  Sex: Male
  Weight: 84 kg

DRUGS (12)
  1. ZELBORAF [Suspect]
     Indication: MALIGNANT MELANOMA
     Route: 048
     Dates: start: 20130901, end: 20131002
  2. LERCANIDIPINE [Concomitant]
     Route: 048
     Dates: start: 20130919
  3. HYDROCHLOROTHIAZIDE/IRBESARTAN [Concomitant]
     Dosage: 300 / 12.5
     Route: 048
  4. PRAVASTATINE [Concomitant]
     Dosage: 40 MG
     Route: 048
  5. ATENOLOL [Concomitant]
     Dosage: 10 MG
     Route: 048
  6. KALEORID [Concomitant]
     Dosage: LP 1000
     Route: 048
  7. MEDROL [Concomitant]
     Route: 048
     Dates: start: 20130820, end: 20130920
  8. PREVISCAN (FRANCE) [Concomitant]
  9. RABEPRAZOLE [Concomitant]
     Dosage: 10 MG
     Route: 048
  10. METFORMIN [Concomitant]
     Dosage: 1000 MG
     Route: 048
  11. XAMIOL [Concomitant]
     Dosage: VIAL (60 ML) OF GEL FOR SCALP APPLICATION
     Route: 003
  12. DICLOFENAC [Concomitant]
     Route: 003

REACTIONS (5)
  - Disease progression [Fatal]
  - Asthenia [Not Recovered/Not Resolved]
  - Decreased appetite [Not Recovered/Not Resolved]
  - Oedema peripheral [Not Recovered/Not Resolved]
  - Oedema peripheral [Not Recovered/Not Resolved]
